FAERS Safety Report 8359340-6 (Version None)
Quarter: 2012Q2

REPORT INFORMATION
  Report Type: 
  Country: None (occurrence: None)
  Receive Date: 20120515
  Receipt Date: 20120511
  Transmission Date: 20120825
  Serious: Yes (Other)
  Sender: FDA-Public Use
  Company Number: US-PFIZER INC-2012115802

PATIENT
  Sex: Female
  Weight: 102.04 kg

DRUGS (4)
  1. LYRICA [Suspect]
     Indication: FIBROMYALGIA
     Dosage: 100 MG, DAILY
     Route: 048
  2. METHOTREXATE [Concomitant]
     Indication: PSORIATIC ARTHROPATHY
     Dosage: 17.5 MG, WEEKLY
     Route: 048
  3. LYRICA [Suspect]
     Indication: PSORIATIC ARTHROPATHY
     Dosage: 75 MG, 2X/DAY
     Route: 048
     Dates: start: 20120510
  4. REMICADE [Concomitant]
     Indication: PSORIATIC ARTHROPATHY
     Dosage: 710 MG, MONTHLY
     Route: 042

REACTIONS (6)
  - DIPLOPIA [None]
  - BLADDER DISORDER [None]
  - TREMOR [None]
  - VISION BLURRED [None]
  - DRY MOUTH [None]
  - MEMORY IMPAIRMENT [None]
